FAERS Safety Report 5746284-9 (Version None)
Quarter: 2008Q2

REPORT INFORMATION
  Report Type: 
  Country: None (occurrence: None)
  Receive Date: 20080522
  Receipt Date: 20080516
  Transmission Date: 20081010
  Serious: Yes (Other)
  Sender: FDA-Public Use
  Company Number: PHEH2007US11365

PATIENT
  Age: 78 Year
  Sex: Female

DRUGS (5)
  1. ZOMETA [Suspect]
     Indication: OSTEOPOROSIS
     Dosage: UNK, ONCE/SINGLE
     Dates: start: 20040804
  2. ZOMETA [Suspect]
     Dosage: UNK, ONCE/SINGLE
     Dates: start: 20050914
  3. LIDOCAINE [Concomitant]
     Dosage: 1.7 ML, ONCE/SINGLE
     Dates: start: 20060427
  4. SEPTOCAINE [Concomitant]
     Dosage: 1.7 ML, ONCE/SINGLE
     Dates: start: 20060427
  5. MARCAINE [Concomitant]
     Dosage: 1.8 ML, ONCE/SINGLE
     Dates: start: 20070427

REACTIONS (12)
  - ALVEOLAR OSTEITIS [None]
  - BACK PAIN [None]
  - DENTAL CARIES [None]
  - DENTAL OPERATION [None]
  - DENTAL PULP DISORDER [None]
  - ENDODONTIC PROCEDURE [None]
  - JAW DISORDER [None]
  - OSTEONECROSIS [None]
  - PAIN IN JAW [None]
  - TOOTH DISORDER [None]
  - TOOTH EXTRACTION [None]
  - TOOTH LOSS [None]
